FAERS Safety Report 4366221-1 (Version None)
Quarter: 2004Q2

REPORT INFORMATION
  Report Type: 
  Country: None (occurrence: None)
  Receive Date: 20040527
  Receipt Date: 20040329
  Transmission Date: 20050107
  Serious: No
  Sender: FDA-Public Use
  Company Number: US-BRISTOL-MYERS SQUIBB COMPANY-12545695

PATIENT
  Age: 39 Year
  Sex: Female

DRUGS (1)
  1. DEFINITY [Suspect]
     Dosage: DOSAGE: 1/2CC ROUTE: INJECTED INTO JUGULAR VEIN VIA A PIC LINE.
     Route: 042
     Dates: start: 20040325, end: 20040325

REACTIONS (3)
  - BACK PAIN [None]
  - HEADACHE [None]
  - NECK PAIN [None]
